FAERS Safety Report 13562801 (Version 2)
Quarter: 2017Q2

REPORT INFORMATION
  Report Type: Report from Study
  Country: None (occurrence: HU)
  Receive Date: 20170519
  Receipt Date: 20170606
  Transmission Date: 20170830
  Serious: Yes (Hospitalization)
  Sender: FDA-Public Use
  Company Number: HU-ABBVIE-17K-076-1980393-00

PATIENT
  Age: 69 Year
  Sex: Female
  Weight: 47.8 kg

DRUGS (6)
  1. TREXAN [Concomitant]
     Active Substance: METHOTREXATE SODIUM
     Indication: RHEUMATOID ARTHRITIS
     Route: 048
     Dates: start: 2010, end: 20170513
  2. ACETYLSALICYLIC ACID [Concomitant]
     Active Substance: ASPIRIN
     Indication: ANTICOAGULANT THERAPY
     Route: 048
     Dates: start: 20170509
  3. HUMIRA [Suspect]
     Active Substance: ADALIMUMAB
     Indication: RHEUMATOID ARTHRITIS
     Route: 058
     Dates: start: 201606
  4. TRITACE [Concomitant]
     Active Substance: RAMIPRIL
     Indication: HYPERTENSION
     Route: 048
     Dates: start: 20170509
  5. MEDROL [Suspect]
     Active Substance: METHYLPREDNISOLONE
     Indication: RHEUMATOID ARTHRITIS
     Route: 048
     Dates: start: 201609
  6. TREXAN [Concomitant]
     Active Substance: METHOTREXATE SODIUM
     Dosage: 1 INJECTION PER WEEK
     Dates: start: 20170513

REACTIONS (10)
  - Renal cyst [Not Recovered/Not Resolved]
  - Hepatic cyst [Not Recovered/Not Resolved]
  - Asphyxia [Not Recovered/Not Resolved]
  - Hyperhidrosis [Not Recovered/Not Resolved]
  - Hypertension [Recovering/Resolving]
  - Weight decreased [Unknown]
  - Alopecia [Unknown]
  - Rheumatoid arthritis [Unknown]
  - Coagulopathy [Recovering/Resolving]
  - Dysphagia [Not Recovered/Not Resolved]

NARRATIVE: CASE EVENT DATE: 201612
